FAERS Safety Report 17485178 (Version 1)
Quarter: 2020Q1

REPORT INFORMATION
  Report Type: Spontaneous
  Country: US (occurrence: US)
  Receive Date: 20200302
  Receipt Date: 20200302
  Transmission Date: 20200409
  Serious: Yes (Other)
  Sender: FDA-Public Use
  Company Number: US-NAPPMUNDI-USA-2020-0150077

PATIENT
  Age: 52 Year
  Sex: Female

DRUGS (5)
  1. OXYCONTIN [Suspect]
     Active Substance: OXYCODONE HYDROCHLORIDE
     Indication: PAIN
     Dosage: 40 MG, UNK
     Route: 048
     Dates: start: 1999
  2. RECLAST [Suspect]
     Active Substance: ZOLEDRONIC ACID
     Indication: PRODUCT USED FOR UNKNOWN INDICATION
     Route: 065
  3. PERCOCET                           /00446701/ [Suspect]
     Active Substance: ACETAMINOPHEN\OXYCODONE HYDROCHLORIDE\OXYCODONE TEREPHTHALATE
     Indication: PAIN
     Dosage: UNK
     Route: 065
     Dates: start: 1999
  4. OXYCONTIN [Suspect]
     Active Substance: OXYCODONE HYDROCHLORIDE
     Dosage: 80 MG, UNK
     Route: 048
     Dates: start: 1999
  5. ZANTAC [Suspect]
     Active Substance: RANITIDINE HYDROCHLORIDE
     Indication: PRODUCT USED FOR UNKNOWN INDICATION
     Route: 065

REACTIONS (19)
  - Syndactyly [Unknown]
  - Osteonecrosis [Unknown]
  - Knee operation [Unknown]
  - Shoulder operation [Unknown]
  - Coma [Unknown]
  - Limb operation [Unknown]
  - Surgery [Unknown]
  - Haematemesis [Unknown]
  - Unevaluable event [Unknown]
  - Off label use [Unknown]
  - Joint dislocation [Unknown]
  - Medical device implantation [Unknown]
  - Neuralgia [Unknown]
  - Tooth loss [Unknown]
  - Tooth extraction [Unknown]
  - Femur fracture [Unknown]
  - Gastric perforation [Unknown]
  - Arthralgia [Unknown]
  - Infection [Unknown]

NARRATIVE: CASE EVENT DATE: 2000
